FAERS Safety Report 8387973-X (Version None)
Quarter: 2012Q2

REPORT INFORMATION
  Report Type: 
  Country: None (occurrence: None)
  Receive Date: 20120525
  Receipt Date: 20120518
  Transmission Date: 20120825
  Serious: Yes (Other)
  Sender: FDA-Public Use
  Company Number: NL-BAXTER-2012BAX006434

PATIENT
  Age: 78 Year
  Sex: Female

DRUGS (3)
  1. NUTRINEAL [Suspect]
     Route: 033
     Dates: start: 20080204
  2. PHYSIONEAL 40 GLUCOSE 1.36% W/V / 13.6 MG/ML [Suspect]
     Route: 033
     Dates: start: 20080204
  3. EXTRANEAL [Suspect]
     Route: 033
     Dates: start: 20080204

REACTIONS (2)
  - CEREBROVASCULAR ACCIDENT [None]
  - TRANSIENT ISCHAEMIC ATTACK [None]
